FAERS Safety Report 8076334-9 (Version None)
Quarter: 2012Q1

REPORT INFORMATION
  Report Type: 
  Country: None (occurrence: None)
  Receive Date: 20120127
  Receipt Date: 20120120
  Transmission Date: 20120608
  Serious: Yes (Hospitalization)
  Sender: FDA-Public Use
  Company Number: CL-ROCHE-1032396

PATIENT
  Sex: Female
  Weight: 62 kg

DRUGS (5)
  1. ENALAPRIL [Concomitant]
     Indication: HYPERTENSION
     Route: 048
  2. ANTINEOPLASTIC AGENT NOS [Suspect]
     Indication: GASTRIC CANCER
     Route: 042
     Dates: start: 20111124
  3. ATENOLOL [Concomitant]
     Indication: HYPERTENSION
     Route: 048
  4. XELODA [Suspect]
     Indication: GASTRIC CANCER
     Dosage: 2000 MG/DAY EVERY 14 DAYS
     Route: 048
     Dates: start: 20111124
  5. HYDROCHLOROTHIAZIDE [Concomitant]
     Indication: HYPERTENSION
     Route: 048

REACTIONS (3)
  - ACUTE RESPIRATORY FAILURE [None]
  - PYREXIA [None]
  - TREMOR [None]
